FAERS Safety Report 15140939 (Version 1)
Quarter: 2018Q3

REPORT INFORMATION
  Report Type: Spontaneous
  Country: CA (occurrence: CA)
  Receive Date: 20180713
  Receipt Date: 20180713
  Transmission Date: 20181010
  Serious: Yes (Life-Threatening, Hospitalization)
  Sender: FDA-Public Use
  Company Number: CA-PFIZER INC-2018282975

PATIENT
  Age: 61 Year
  Sex: Female

DRUGS (7)
  1. METRONIDAZOLE. [Concomitant]
     Active Substance: METRONIDAZOLE
     Indication: SEPSIS
  2. CIPROFLOXACIN. [Concomitant]
     Active Substance: CIPROFLOXACIN
     Indication: BACTERAEMIA
     Dosage: UNK
  3. CEFAZOLIN [Concomitant]
     Active Substance: CEFAZOLIN
     Indication: PAROTITIS
     Dosage: UNK
  4. MEROPENEM. [Concomitant]
     Active Substance: MEROPENEM
     Indication: SEPSIS
  5. METHYLPREDNISOLONE SODIUM SUCCINATE. [Suspect]
     Active Substance: METHYLPREDNISOLONE SODIUM SUCCINATE
     Dosage: 80 MG, UNK
     Route: 042
  6. MEROPENEM. [Concomitant]
     Active Substance: MEROPENEM
     Indication: ABDOMINAL ABSCESS
     Dosage: UNK
     Route: 042
  7. METRONIDAZOLE. [Concomitant]
     Active Substance: METRONIDAZOLE
     Indication: ABDOMINAL ABSCESS
     Dosage: UNK
     Route: 042

REACTIONS (1)
  - Herpes simplex colitis [Recovering/Resolving]
